FAERS Safety Report 24223402 (Version 3)
Quarter: 2024Q3

REPORT INFORMATION
  Report Type: Report from Study
  Country: DE (occurrence: DE)
  Receive Date: 20240819
  Receipt Date: 20240930
  Transmission Date: 20241017
  Serious: Yes (Life-Threatening, Hospitalization, Other)
  Sender: MYLAN
  Company Number: DE-BRISTOL-MYERS SQUIBB COMPANY-2024-114703

PATIENT
  Age: 61 Year
  Sex: Male
  Weight: 64 kg

DRUGS (10)
  1. OXALIPLATIN [Suspect]
     Active Substance: OXALIPLATIN
     Indication: Oesophageal squamous cell carcinoma
     Dosage: 155 MILLIGRAM, Q2W (EVERY 14 DAYS)
     Route: 042
     Dates: start: 20240628, end: 20240712
  2. FLUOROURACIL [Suspect]
     Active Substance: FLUOROURACIL
     Indication: Oesophageal squamous cell carcinoma
     Dosage: 5125 MILLIGRAM, Q2W (EVERY 14 DAYS)
     Route: 042
     Dates: start: 20240628, end: 20240713
  3. OPDIVO [Suspect]
     Active Substance: NIVOLUMAB
     Indication: Oesophageal squamous cell carcinoma
     Dosage: 240 MILLIGRAM, Q2W (EVERY 14 DAYS)
     Route: 042
     Dates: start: 20240628, end: 20240808
  4. LEVOTHYROXINE [Concomitant]
     Active Substance: LEVOTHYROXINE\LEVOTHYROXINE SODIUM
     Indication: Oesophageal squamous cell carcinoma
     Dosage: 100 MICROGRAM, QD
     Route: 065
  5. APIXABAN [Concomitant]
     Active Substance: APIXABAN
     Indication: Prophylaxis
     Dosage: 5 MILLIGRAM, QD
     Route: 048
     Dates: start: 20240729
  6. FOLIC ACID [Concomitant]
     Active Substance: FOLIC ACID
     Indication: Oesophageal squamous cell carcinoma
     Dosage: 730 MILLIGRAM (ABSOLUT, WITH EVERY CHEMOTHERAPY CYCLE)
     Route: 042
     Dates: start: 20240628
  7. DEXAMETHASONE [Concomitant]
     Active Substance: DEXAMETHASONE
     Indication: Prophylaxis
     Dosage: 8 MILLIGRAM (WITH EVERY CHEMOTHERAPY CYCLE)
     Route: 042
     Dates: start: 20240628
  8. FENTANYL [Concomitant]
     Active Substance: FENTANYL\FENTANYL CITRATE
     Indication: Oesophageal squamous cell carcinoma
     Dosage: 25 MICROGRAM, QH (25 ?G/H)
     Route: 003
     Dates: start: 20240717
  9. ACETAMINOPHEN [Concomitant]
     Active Substance: ACETAMINOPHEN
     Indication: Oesophageal squamous cell carcinoma
     Dosage: 500 MILLIGRAM, QID (0.25 DAY)
     Route: 042
     Dates: start: 20240714, end: 20240717
  10. GRANISETRON [Concomitant]
     Active Substance: GRANISETRON
     Indication: Prophylaxis
     Dosage: 1 MILLIGRAM (WITH EVERY CHEMOTHERAPY CYCLE)
     Route: 042
     Dates: start: 20240628

REACTIONS (7)
  - Cardiac failure [Not Recovered/Not Resolved]
  - Respiratory failure [Unknown]
  - Aspiration [Unknown]
  - Pulmonary embolism [Unknown]
  - Candida pneumonia [Recovered/Resolved]
  - Bronchitis bacterial [Recovered/Resolved]
  - Fistula [Unknown]

NARRATIVE: CASE EVENT DATE: 20240704
